FAERS Safety Report 16469457 (Version 2)
Quarter: 2020Q1

REPORT INFORMATION
  Report Type: Report from Study
  Country: US (occurrence: US)
  Receive Date: 20190624
  Receipt Date: 20200316
  Transmission Date: 20200409
  Serious: No
  Sender: FDA-Public Use
  Company Number: US-SA-2019SA165079

PATIENT
  Age: 66 Year
  Sex: Female

DRUGS (2)
  1. DUPILUMAB [Suspect]
     Active Substance: DUPILUMAB
     Indication: DERMATITIS ATOPIC
     Dosage: 600 MG
     Route: 058
     Dates: start: 20190401, end: 20190401
  2. DUPILUMAB [Suspect]
     Active Substance: DUPILUMAB
     Dosage: 300 MG, QOW
     Route: 058
     Dates: start: 20190417

REACTIONS (4)
  - Rash [Not Recovered/Not Resolved]
  - Oral herpes [Unknown]
  - Therapeutic response decreased [Not Recovered/Not Resolved]
  - Rash macular [Recovering/Resolving]

NARRATIVE: CASE EVENT DATE: 2019
